FAERS Safety Report 13515173 (Version 1)
Quarter: 2017Q2

REPORT INFORMATION
  Report Type: Spontaneous
  Country: US (occurrence: US)
  Receive Date: 20170504
  Receipt Date: 20170504
  Transmission Date: 20170830
  Serious: No
  Sender: FDA-Public Use
  Company Number: GXBR2017US001053

PATIENT
  Age: 43 Year
  Sex: Female
  Weight: 72.56 kg

DRUGS (2)
  1. ATENOLOL TABLETS USP [Suspect]
     Active Substance: ATENOLOL
     Dosage: 12.5 MG, UNK
     Route: 048
     Dates: start: 20170301
  2. ATENOLOL TABLETS USP [Suspect]
     Active Substance: ATENOLOL
     Indication: BLOOD PRESSURE MEASUREMENT
     Dosage: 25 MG, UNK
     Route: 048
     Dates: start: 201702, end: 20170301

REACTIONS (1)
  - Fatigue [Unknown]

NARRATIVE: CASE EVENT DATE: 201702
